FAERS Safety Report 5361653-7 (Version None)
Quarter: 2007Q2

REPORT INFORMATION
  Report Type: 
  Country: None (occurrence: None)
  Receive Date: 20070615
  Receipt Date: 20070615
  Transmission Date: 20071010
  Serious: Yes (Congenital Anomaly)
  Sender: FDA-Public Use
  Company Number: None

PATIENT
  Age: 5 Week
  Sex: Female

DRUGS (2)
  1. PRIMACARE PRENATAL VITAMINS (THER-RX CORPORATION) [Suspect]
     Indication: SUPPLEMENTATION THERAPY
     Dosage: 1 AM CAP + 1 PM TAB QD SINCE 10 MONTHS AGO
  2. PRIMACARE PRENATAL VITAMINS (THER-RX CORPORATION) [Suspect]
     Indication: VITAMIN SUPPLEMENTATION
     Dosage: 1 AM CAP + 1 PM TAB QD SINCE 10 MONTHS AGO

REACTIONS (2)
  - CATARACT [None]
  - DRUG EXPOSURE DURING PREGNANCY [None]
